FAERS Safety Report 8171006-4 (Version None)
Quarter: 2012Q1

REPORT INFORMATION
  Report Type: 
  Country: None (occurrence: None)
  Receive Date: 20120104
  Receipt Date: 20111208
  Transmission Date: 20120608
  Serious: No
  Sender: FDA-Public Use
  Company Number: 2011HGS-002512

PATIENT
  Age: 54 Year
  Sex: Female
  Weight: 52.1637 kg

DRUGS (14)
  1. BENLYSTA [Suspect]
     Indication: SYSTEMIC LUPUS ERYTHEMATOSUS
     Dosage: 10 MG/KG, 1 IN 14 D, INTRAVENOUS DRIP
     Route: 042
     Dates: start: 20110819, end: 20110902
  2. CALCIUM (CALCIUM)(CALCIUM) [Concomitant]
  3. LORTAB (VICODIN)(PARACETAMOL, HYDROCODONE BITARTRATE) [Concomitant]
  4. TRAMADOL HCL [Concomitant]
  5. VITAMIN D(ERGOCALCIFEROL)(ERGOCALCIFEROL) [Concomitant]
  6. PRILOSEC (OMEPRAZOLE) (OMEPRAZOLE) [Concomitant]
  7. PLAQUENIL (HYDROXYCHLOROQUINE SULFATE)(HYDROXYCHLOROQUINE SULFATE) [Concomitant]
  8. PREDNISONE [Concomitant]
  9. IMURAN [Concomitant]
  10. CRESTOR [Concomitant]
  11. ESTRATEST (ESTRATEST HS)(METHYLTESTOSTERONE, ESTROGENS ESTERIFIED) [Concomitant]
  12. BACLOFEN [Concomitant]
  13. XANAX [Concomitant]
  14. DEPO MEDROL (METHYLPREDNISOLONE ACETATE)(METHYLPREDNISOLONE ACETATE) [Concomitant]

REACTIONS (12)
  - SWOLLEN TONGUE [None]
  - MALAISE [None]
  - ARTHRALGIA [None]
  - APHASIA [None]
  - HYPERSENSITIVITY [None]
  - JOINT SWELLING [None]
  - PNEUMONIA [None]
  - DYSPHAGIA [None]
  - ERYTHEMA [None]
  - JOINT STABILISATION [None]
  - SWELLING FACE [None]
  - WEIGHT DECREASED [None]
